FAERS Safety Report 15695256 (Version 1)
Quarter: 2018Q4

REPORT INFORMATION
  Report Type: Report from Study
  Country: None (occurrence: DE)
  Receive Date: 20181206
  Receipt Date: 20181206
  Transmission Date: 20190205
  Serious: Yes (Other)
  Sender: FDA-Public Use
  Company Number: DE-ABBVIE-18K-062-2580365-00

PATIENT
  Age: 53 Year
  Sex: Male
  Weight: 73 kg

DRUGS (3)
  1. HUMIRA [Suspect]
     Active Substance: ADALIMUMAB
     Indication: PSORIASIS
     Route: 058
     Dates: start: 20170307, end: 2018
  2. CANDESARTAN. [Concomitant]
     Active Substance: CANDESARTAN
     Indication: PRODUCT USED FOR UNKNOWN INDICATION
     Dates: start: 20170720
  3. CANDESARTAN. [Concomitant]
     Active Substance: CANDESARTAN

REACTIONS (9)
  - Cardiovascular disorder [Recovered/Resolved with Sequelae]
  - Aortic valve stenosis [Recovered/Resolved with Sequelae]
  - Diastolic dysfunction [Recovered/Resolved with Sequelae]
  - Left ventricular dysfunction [Recovered/Resolved with Sequelae]
  - Aortic aneurysm [Recovered/Resolved with Sequelae]
  - Coronary artery disease [Recovered/Resolved with Sequelae]
  - Peripheral arterial occlusive disease [Recovered/Resolved with Sequelae]
  - Carotid artery stenosis [Recovered/Resolved with Sequelae]
  - Vascular occlusion [Recovered/Resolved with Sequelae]

NARRATIVE: CASE EVENT DATE: 20171017
